FAERS Safety Report 12858851 (Version 2)
Quarter: 2016Q4

REPORT INFORMATION
  Report Type: Spontaneous
  Country: IT (occurrence: IT)
  Receive Date: 20161018
  Receipt Date: 20161027
  Transmission Date: 20170207
  Serious: Yes (Other)
  Sender: FDA-Public Use
  Company Number: IT-MYLANLABS-2016M1043137

PATIENT

DRUGS (5)
  1. DOXORUBICIN [Suspect]
     Active Substance: DOXORUBICIN
     Indication: B-CELL LYMPHOMA STAGE III
     Dosage: UNK
     Dates: start: 200907
  2. PREDNISONE. [Suspect]
     Active Substance: PREDNISONE
     Indication: B-CELL LYMPHOMA STAGE III
     Dosage: UNK
     Dates: start: 200907
  3. RITUXIMAB [Suspect]
     Active Substance: RITUXIMAB
     Indication: B-CELL LYMPHOMA STAGE III
     Dosage: 375 MG/M2, Q21D
     Dates: start: 200907
  4. CYCLOPHOSPHAMIDE. [Suspect]
     Active Substance: CYCLOPHOSPHAMIDE
     Indication: B-CELL LYMPHOMA STAGE III
     Dosage: UNK
     Dates: start: 200907
  5. VINCRISTINE [Suspect]
     Active Substance: VINCRISTINE
     Indication: B-CELL LYMPHOMA STAGE III
     Dosage: UNK
     Dates: start: 200907

REACTIONS (1)
  - Progressive multifocal leukoencephalopathy [Unknown]
